FAERS Safety Report 6456239-7 (Version None)
Quarter: 2009Q4

REPORT INFORMATION
  Report Type: 
  Country: None (occurrence: None)
  Receive Date: 20091125
  Receipt Date: 20091117
  Transmission Date: 20100525
  Serious: No
  Sender: FDA-Public Use
  Company Number: GB-ROCHE-606496

PATIENT
  Sex: Female

DRUGS (5)
  1. ROACCUTANE [Suspect]
     Indication: ACNE
     Route: 065
     Dates: start: 20081022, end: 20090105
  2. ROACCUTANE [Suspect]
     Route: 065
     Dates: start: 20070501, end: 20070701
  3. ROACCUTANE [Suspect]
     Route: 065
     Dates: start: 20050501, end: 20060101
  4. DIANETTE [Concomitant]
     Indication: ACNE
     Dosage: INDICATION REPORTED AS ACNE/CONTRACEPTION
     Route: 048
     Dates: start: 20080704
  5. ANTIBIOTIC NOS [Concomitant]
     Dates: start: 20081201

REACTIONS (2)
  - ABORTION INDUCED [None]
  - NO ADVERSE EVENT [None]
